FAERS Safety Report 9578726 (Version 1)
Quarter: 2013Q4

REPORT INFORMATION
  Report Type: Spontaneous
  Country: US (occurrence: US)
  Receive Date: 20131001
  Receipt Date: 20131001
  Transmission Date: 20140711
  Serious: No
  Sender: FDA-Public Use
  Company Number: US-AMGEN-USASP2013014719

PATIENT
  Sex: Male
  Weight: 86.17 kg

DRUGS (18)
  1. ENBREL [Suspect]
     Indication: RHEUMATOID ARTHRITIS
     Dosage: 50 MG, QWK
     Route: 058
  2. COREG [Concomitant]
     Dosage: 3.125 MG, UNK
  3. DIGOXIN [Concomitant]
     Dosage: 0.125 MG, UNK
  4. PRAVASTATIN [Concomitant]
     Dosage: 10 MG, UNK
  5. SYNTHROID [Concomitant]
     Dosage: 25 MUG, UNK
  6. PREDNISONE [Concomitant]
     Dosage: 1 MG, UNK
  7. FUROSEMIDE [Concomitant]
     Dosage: 20 MG, UNK
  8. POTASSIUM [Concomitant]
     Dosage: 25 MEQ, EF
  9. SULFASALAZIN [Concomitant]
     Dosage: 500 MG, UNK
  10. METHOTREXATE [Concomitant]
     Dosage: 2.5 MG, UNK
  11. FOLIC ACID [Concomitant]
     Dosage: UNK
  12. PANTOPRAZOLE [Concomitant]
     Dosage: 20 MG, UNK
  13. MELOXICAM [Concomitant]
     Dosage: 7.5 MG, UNK
  14. BABY ASPIRIN [Concomitant]
     Dosage: 81 MG, UNK
  15. GLUCOSAMINE/CHONDROITIN            /01625901/ [Concomitant]
     Dosage: UNK
  16. LYSINE [Concomitant]
     Dosage: 500 MG, UNK
  17. MULTIVITAMINS, PLAIN [Concomitant]
     Dosage: UNK
  18. TUMS KIDS [Concomitant]
     Dosage: 750 MG, UNK

REACTIONS (1)
  - Drug ineffective [Unknown]
